FAERS Safety Report 5264975-3 (Version None)
Quarter: 2007Q1

REPORT INFORMATION
  Report Type: 
  Country: None (occurrence: None)
  Receive Date: 20070314
  Receipt Date: 20070302
  Transmission Date: 20070707
  Serious: Yes (Death, Life-Threatening, Hospitalization)
  Sender: FDA-Public Use
  Company Number: US-ROCHE-481348

PATIENT
  Age: 47 Year
  Sex: Male
  Weight: 75 kg

DRUGS (15)
  1. CAPECITABINE [Suspect]
     Route: 048
     Dates: start: 20070112, end: 20070124
  2. CETUXIMAB [Suspect]
     Route: 042
     Dates: start: 20070112, end: 20070112
  3. CETUXIMAB [Suspect]
     Route: 042
     Dates: start: 20070119, end: 20070119
  4. OXALIPLATIN [Suspect]
     Route: 065
     Dates: start: 20070112
  5. VIT B1 [Concomitant]
  6. VIT K [Concomitant]
     Route: 048
  7. NEXIUM [Concomitant]
     Route: 048
  8. FOLIC ACID [Concomitant]
  9. INDERAL [Concomitant]
     Route: 048
  10. LASIX [Concomitant]
     Route: 048
  11. OXYCODONE HCL [Concomitant]
     Indication: PAIN
     Dosage: EVERY 4-6 HOURS PRN
  12. SPIRONOLACTONE [Concomitant]
     Route: 048
  13. PHENERGAN HCL [Concomitant]
     Dosage: AS NEEDED
  14. COMPAZINE [Concomitant]
     Route: 048
  15. ATIVAN [Concomitant]
     Dosage: PRN

REACTIONS (11)
  - ABDOMINAL PAIN [None]
  - ASPARTATE AMINOTRANSFERASE [None]
  - CHRONIC HEPATIC FAILURE [None]
  - DIARRHOEA [None]
  - HEPATIC NEOPLASM MALIGNANT [None]
  - HEPATITIS C [None]
  - HYPERKALAEMIA [None]
  - HYPONATRAEMIA [None]
  - HYPOTENSION [None]
  - RENAL FAILURE ACUTE [None]
  - SEPTIC SHOCK [None]
